FAERS Safety Report 23100862 (Version 1)
Quarter: 2023Q4

REPORT INFORMATION
  Report Type: Spontaneous
  Country: US (occurrence: None)
  Receive Date: 20231021
  Receipt Date: 20231021
  Transmission Date: 20240109
  Serious: Yes (Hospitalization)
  Sender: FDA-Public Use
  Company Number: None

PATIENT
  Age: 65 Year
  Sex: Male
  Weight: 87 kg

DRUGS (1)
  1. HALOPERIDOL [Suspect]
     Active Substance: HALOPERIDOL
     Dosage: FREQUENCY : AS NEEDED;?
     Route: 048
     Dates: end: 20230401

REACTIONS (2)
  - Neuroleptic malignant syndrome [None]
  - Malignant catatonia [None]

NARRATIVE: CASE EVENT DATE: 20230330
